FAERS Safety Report 5206195-4 (Version None)
Quarter: 2006Q4

REPORT INFORMATION
  Report Type: 
  Country: None (occurrence: None)
  Receive Date: 20061026
  Receipt Date: 20060925
  Transmission Date: 20070319
  Serious: No
  Sender: FDA-Public Use
  Company Number: 2006117133

PATIENT
  Age: 63 Year
  Sex: Male
  Weight: 97.5234 kg

DRUGS (6)
  1. LYRICA [Suspect]
     Indication: NEUROPATHY PERIPHERAL
     Dosage: 150 MG (50 MG, 3 IN 1 D)
     Dates: start: 20060101
  2. DURAGESIC-100 [Concomitant]
  3. CARISOPRODOL [Concomitant]
  4. ALPRAZOLAM [Concomitant]
  5. AMBIEN [Concomitant]
  6. PREDNISONE TAB [Concomitant]

REACTIONS (7)
  - DRUG EFFECT DECREASED [None]
  - FEELING COLD [None]
  - FEELING HOT [None]
  - HYPERHIDROSIS [None]
  - MALAISE [None]
  - NAUSEA [None]
  - PAIN [None]
